FAERS Safety Report 8410769 (Version 3)
Quarter: 2024Q3

REPORT INFORMATION
  Report Type: Report from Study
  Country: BR (occurrence: BR)
  Receive Date: 20120217
  Receipt Date: 20240717
  Transmission Date: 20241017
  Serious: Yes (Death, Life-Threatening, Hospitalization, Other)
  Sender: ASTELLAS
  Company Number: BR-ASTELLAS-2012US001770

PATIENT
  Age: 68 Year
  Sex: Male
  Weight: 60 kg

DRUGS (22)
  1. ERLOTINIB [Suspect]
     Active Substance: ERLOTINIB
     Indication: Hepatocellular carcinoma
     Route: 048
     Dates: start: 20100810, end: 20100917
  2. ERLOTINIB [Suspect]
     Active Substance: ERLOTINIB
     Indication: Diarrhoea
     Route: 048
     Dates: start: 20100918, end: 20101013
  3. ERLOTINIB [Suspect]
     Active Substance: ERLOTINIB
     Indication: Hypertension
     Route: 048
     Dates: start: 20101015, end: 20110506
  4. ERLOTINIB [Suspect]
     Active Substance: ERLOTINIB
     Indication: Rash
     Route: 048
     Dates: start: 20110508, end: 20110806
  5. ERLOTINIB [Suspect]
     Active Substance: ERLOTINIB
     Indication: Weight decreased
     Route: 048
     Dates: start: 20110808, end: 20110816
  6. ERLOTINIB [Suspect]
     Active Substance: ERLOTINIB
     Route: 048
     Dates: start: 20110818, end: 20110830
  7. ERLOTINIB [Suspect]
     Active Substance: ERLOTINIB
     Route: 048
     Dates: start: 20110901, end: 20110915
  8. ERLOTINIB [Suspect]
     Active Substance: ERLOTINIB
     Route: 048
     Dates: start: 20110917, end: 20111001
  9. ERLOTINIB [Suspect]
     Active Substance: ERLOTINIB
     Route: 048
     Dates: start: 20111003, end: 20111020
  10. ERLOTINIB [Suspect]
     Active Substance: ERLOTINIB
     Route: 048
     Dates: start: 20111022, end: 20111230
  11. ERLOTINIB [Suspect]
     Active Substance: ERLOTINIB
     Route: 048
     Dates: start: 20120101, end: 20120105
  12. ERLOTINIB [Suspect]
     Active Substance: ERLOTINIB
     Route: 048
     Dates: start: 20120108, end: 20120209
  13. SORAFENIB [Suspect]
     Active Substance: SORAFENIB
     Indication: Hepatocellular carcinoma
     Route: 048
     Dates: start: 20100810, end: 20101013
  14. SORAFENIB [Suspect]
     Active Substance: SORAFENIB
     Route: 048
     Dates: start: 20120101, end: 20120102
  15. SORAFENIB [Suspect]
     Active Substance: SORAFENIB
     Route: 048
     Dates: start: 20120108, end: 20120209
  16. Renitec [Concomitant]
     Indication: Hypertension
     Dosage: UNK UNK, UNKNOWN FREQ.
     Route: 065
     Dates: start: 20100824
  17. LOPERAMIDE [Concomitant]
     Active Substance: LOPERAMIDE
     Indication: Diarrhoea
     Dosage: UNK UNK, UNKNOWN FREQ.
     Route: 065
     Dates: start: 20100919
  18. PROPRANOLOL HYDROCHLORIDE [Concomitant]
     Active Substance: PROPRANOLOL HYDROCHLORIDE
     Indication: Prophylaxis
     Dosage: UNK UNK, UNKNOWN FREQ.
     Route: 065
     Dates: start: 20101019
  19. CLINDAGEL [Concomitant]
     Active Substance: CLINDAMYCIN PHOSPHATE
     Indication: Rash
     Dosage: UNK UNK, UNKNOWN FREQ.
     Route: 065
     Dates: start: 20100831
  20. CODEINE [Concomitant]
     Active Substance: CODEINE
     Indication: Diarrhoea
     Dosage: UNK UNK, UNKNOWN FREQ.
     Route: 065
     Dates: start: 20110403
  21. NUTRAPLUS [Concomitant]
     Indication: Rash
     Dosage: UNK UNK, UNKNOWN FREQ.
     Route: 065
     Dates: start: 20110614
  22. ENSURE [Concomitant]
     Active Substance: AMINO ACIDS\DEXTROSE\ELECTROLYTES NOS\SOYBEAN OIL\VITAMINS
     Indication: Weight decreased
     Dosage: UNK UNK, UNKNOWN FREQ.
     Route: 065
     Dates: start: 201101

REACTIONS (9)
  - Pneumonia [Fatal]
  - Multiple organ dysfunction syndrome [Fatal]
  - Malignant neoplasm progression [Fatal]
  - Septic shock [Unknown]
  - Loss of consciousness [Unknown]
  - Haematochezia [Unknown]
  - Adverse event [Unknown]
  - Product dose omission issue [Unknown]
  - Off label use [Unknown]

NARRATIVE: CASE EVENT DATE: 20100918
